FAERS Safety Report 19926767 (Version 1)
Quarter: 2021Q4

REPORT INFORMATION
  Report Type: Spontaneous
  Country: US (occurrence: US)
  Receive Date: 20211007
  Receipt Date: 20211007
  Transmission Date: 20220303
  Serious: Yes (Other)
  Sender: FDA-Public Use
  Company Number: US-ORGANON-O2110USA000350

PATIENT
  Sex: Female

DRUGS (1)
  1. FOSAMAX [Suspect]
     Active Substance: ALENDRONATE SODIUM
     Dosage: 1 DOSAGE FORM (TABLET), QW(ONCE WEEKLY)
     Route: 048
     Dates: start: 202102

REACTIONS (2)
  - Retinal detachment [Unknown]
  - Retinal detachment [Unknown]

NARRATIVE: CASE EVENT DATE: 20210729
